FAERS Safety Report 18598912 (Version 1)
Quarter: 2020Q4

REPORT INFORMATION
  Report Type: Spontaneous
  Country: US (occurrence: US)
  Receive Date: 20201113
  Receipt Date: 20201113
  Transmission Date: 20210114
  Serious: No
  Sender: FDA-Public Use
  Company Number: None

PATIENT
  Age: 7 Decade
  Sex: Female

DRUGS (6)
  1. HYDROXYCHLOROQUINE [Suspect]
     Active Substance: HYDROXYCHLOROQUINE
  2. AZITHROMYCIN ANHYDROUS. [Suspect]
     Active Substance: AZITHROMYCIN ANHYDROUS
  3. PIPERACILLIN AND TAZOBACTAM [Suspect]
     Active Substance: PIPERACILLIN SODIUM\TAZOBACTAM SODIUM
     Indication: COVID-19
  4. DARUNAVIR-COBICSTAT [Suspect]
     Active Substance: COBICISTAT\DARUNAVIR ETHANOLATE
  5. ENOXAPARIN [Suspect]
     Active Substance: ENOXAPARIN
     Dosage: ?          OTHER DOSE:70 IU/KG;?
  6. FXIII CONCENTRATE, PLASMA DERIVED [Suspect]
     Active Substance: FACTOR XIII CONCENTRATE (HUMAN)
     Dosage: ?          OTHER DOSE:32 IU/KG;?

REACTIONS (3)
  - Factor XIII deficiency [None]
  - Product use in unapproved indication [None]
  - Internal haemorrhage [None]
